FAERS Safety Report 8452311-0 (Version None)
Quarter: 2012Q2

REPORT INFORMATION
  Report Type: 
  Country: None (occurrence: None)
  Receive Date: 20120620
  Receipt Date: 20120612
  Transmission Date: 20120825
  Serious: Yes (Hospitalization, Other)
  Sender: FDA-Public Use
  Company Number: CA-ELI_LILLY_AND_COMPANY-CA201204002201

PATIENT
  Age: 33 Year
  Sex: Male

DRUGS (12)
  1. URSODIOL [Concomitant]
  2. CALCIUM [Concomitant]
  3. FOLIC ACID [Concomitant]
  4. VITAMIN D [Concomitant]
  5. LYRICA [Concomitant]
  6. PREDNISONE TAB [Concomitant]
     Dosage: UNK, UNKNOWN
     Route: 065
     Dates: start: 20120217
  7. MYCOPHENOLATE MOFETIL [Concomitant]
  8. CYMBALTA [Concomitant]
  9. PREDNISONE TAB [Concomitant]
     Dosage: UNK
  10. FORTEO [Suspect]
     Indication: OSTEOPOROSIS
     Dosage: 20 UG, QD
     Route: 058
     Dates: start: 20111005, end: 20120117
  11. TACROLIMUS [Concomitant]
  12. TRAZODONE HCL [Concomitant]

REACTIONS (4)
  - TYPE 2 DIABETES MELLITUS [None]
  - FATIGUE [None]
  - POLYDIPSIA [None]
  - HOSPITALISATION [None]
